FAERS Safety Report 12666934 (Version 2)
Quarter: 2016Q3

REPORT INFORMATION
  Report Type: Report from Study
  Country: US (occurrence: US)
  Receive Date: 20160819
  Receipt Date: 20160919
  Transmission Date: 20161109
  Serious: No
  Sender: FDA-Public Use
  Company Number: PHEH2016US020503

PATIENT
  Sex: Female

DRUGS (1)
  1. COSENTYX [Suspect]
     Active Substance: SECUKINUMAB
     Indication: PRODUCT USED FOR UNKNOWN INDICATION
     Dosage: UNK UNK, QW
     Route: 065

REACTIONS (8)
  - Psoriatic arthropathy [Unknown]
  - Drug ineffective [Unknown]
  - Pain [Recovering/Resolving]
  - Paraesthesia [Unknown]
  - Pain in extremity [Unknown]
  - Neck pain [Unknown]
  - Peripheral swelling [Unknown]
  - Hypoaesthesia [Unknown]
